FAERS Safety Report 23899860 (Version 1)
Quarter: 2024Q2

REPORT INFORMATION
  Report Type: Spontaneous
  Country: US (occurrence: None)
  Receive Date: 20240526
  Receipt Date: 20240526
  Transmission Date: 20240716
  Serious: No
  Sender: FDA-Public Use
  Company Number: US-ROCHE-3367630

PATIENT
  Sex: Female
  Weight: 72.64 kg

DRUGS (1)
  1. OCREVUS [Suspect]
     Active Substance: OCRELIZUMAB
     Indication: Relapsing-remitting multiple sclerosis
     Dosage: MOST RECENT DOSE 06/MAR/2023
     Route: 042
     Dates: start: 202101

REACTIONS (1)
  - Trichorrhexis [Not Recovered/Not Resolved]

NARRATIVE: CASE EVENT DATE: 20220401
